FAERS Safety Report 13865235 (Version 3)
Quarter: 2018Q1

REPORT INFORMATION
  Report Type: Report from Study
  Country: US (occurrence: US)
  Receive Date: 20170814
  Receipt Date: 20180222
  Transmission Date: 20180508
  Serious: No
  Sender: FDA-Public Use
  Company Number: US-ACADIA PHARMACEUTICALS INC.-ACA-2017-003451

PATIENT
  Age: 81 Year
  Sex: Female
  Weight: 53.52 kg

DRUGS (12)
  1. PAXIL [Concomitant]
     Active Substance: PAROXETINE HYDROCHLORIDE
     Indication: PRODUCT USED FOR UNKNOWN INDICATION
     Dosage: 20 MG, UNK
  2. NUPLAZID [Suspect]
     Active Substance: PIMAVANSERIN TARTRATE
     Indication: PARKINSON^S DISEASE PSYCHOSIS
     Dosage: 17 MG, BID
     Route: 048
     Dates: start: 20170503
  3. DOMPERIDONE [Concomitant]
     Active Substance: DOMPERIDONE
     Indication: PRODUCT USED FOR UNKNOWN INDICATION
     Dosage: 10 MG, PRN
  4. MULTIVITAMIN [Concomitant]
     Active Substance: VITAMINS
     Indication: PRODUCT USED FOR UNKNOWN INDICATION
  5. QUETIAPINE. [Concomitant]
     Active Substance: QUETIAPINE
     Indication: PRODUCT USED FOR UNKNOWN INDICATION
  6. NUPLAZID [Suspect]
     Active Substance: PIMAVANSERIN TARTRATE
     Indication: PARKINSON^S DISEASE
  7. EXELON [Concomitant]
     Active Substance: RIVASTIGMINE TARTRATE
     Indication: PRODUCT USED FOR UNKNOWN INDICATION
     Dosage: 9.5 MG, UNK
  8. CARBIDOPA/LEVODOPA [Concomitant]
     Active Substance: CARBIDOPA\LEVODOPA
     Indication: PRODUCT USED FOR UNKNOWN INDICATION
     Dosage: 25/250 MG, HALF TABLET, IN AM AND PM
  9. SEROQUEL [Concomitant]
     Active Substance: QUETIAPINE FUMARATE
     Indication: PRODUCT USED FOR UNKNOWN INDICATION
     Dosage: 12.5MG AM, 37.5MG PM
  10. NUPLAZID [Suspect]
     Active Substance: PIMAVANSERIN TARTRATE
     Indication: HALLUCINATION
     Dosage: 34 MG, QD
     Route: 048
     Dates: start: 20170517
  11. NUPLAZID [Suspect]
     Active Substance: PIMAVANSERIN TARTRATE
     Indication: DELUSION
  12. VITAMIN E [Concomitant]
     Active Substance: .ALPHA.-TOCOPHEROL
     Indication: PRODUCT USED FOR UNKNOWN INDICATION

REACTIONS (10)
  - Delusion [Recovering/Resolving]
  - Gait disturbance [Recovering/Resolving]
  - Hallucination [Not Recovered/Not Resolved]
  - Fall [Recovered/Resolved]
  - Laceration [Recovered/Resolved]
  - Confusional state [Recovering/Resolving]
  - Oedema peripheral [Not Recovered/Not Resolved]
  - Inappropriate schedule of drug administration [Recovered/Resolved]
  - Diarrhoea [Recovered/Resolved]
  - Drug ineffective [Unknown]

NARRATIVE: CASE EVENT DATE: 20170507
